FAERS Safety Report 7968412-7 (Version None)
Quarter: 2011Q4

REPORT INFORMATION
  Report Type: 
  Country: None (occurrence: None)
  Receive Date: 20111209
  Receipt Date: 20111124
  Transmission Date: 20120403
  Serious: Yes (Death, Other)
  Sender: FDA-Public Use
  Company Number: DE-CELGENEUS-062-21880-11110263

PATIENT
  Age: 74 Year
  Sex: Male
  Weight: 80 kg

DRUGS (4)
  1. REVLIMID [Suspect]
     Dosage: 10 MILLIGRAM
     Route: 048
     Dates: start: 20110801, end: 20111028
  2. OMEPRAZOLE [Concomitant]
     Dosage: 20 MILLIGRAM
     Route: 065
  3. PREDNISOLONE [Concomitant]
     Dosage: 20 MILLIGRAM
     Route: 065
  4. REVLIMID [Suspect]

REACTIONS (9)
  - ANAEMIA [None]
  - DIARRHOEA [None]
  - SOMNOLENCE [None]
  - CARDIAC DISORDER [None]
  - NAUSEA [None]
  - ESCHERICHIA SEPSIS [None]
  - GASTRIC DISORDER [None]
  - PYREXIA [None]
  - ABDOMINAL PAIN [None]
